FAERS Safety Report 24394662 (Version 5)
Quarter: 2024Q4

REPORT INFORMATION
  Report Type: Report from Study
  Country: CN (occurrence: CN)
  Receive Date: 20241004
  Receipt Date: 20241212
  Transmission Date: 20250115
  Serious: Yes (Hospitalization, Other)
  Sender: ROCHE
  Company Number: CN-ROCHE-10000093516

PATIENT
  Age: 67 Year
  Sex: Male
  Weight: 78 kg

DRUGS (64)
  1. POLATUZUMAB VEDOTIN [Suspect]
     Active Substance: POLATUZUMAB VEDOTIN
     Indication: Diffuse large B-cell lymphoma
     Route: 042
     Dates: start: 20240627
  2. POLATUZUMAB VEDOTIN [Suspect]
     Active Substance: POLATUZUMAB VEDOTIN
     Route: 042
     Dates: start: 20240808, end: 20240808
  3. POLATUZUMAB VEDOTIN [Suspect]
     Active Substance: POLATUZUMAB VEDOTIN
     Route: 042
     Dates: start: 20241010, end: 20241010
  4. ZUBERITAMAB [Suspect]
     Active Substance: ZUBERITAMAB
     Indication: Diffuse large B-cell lymphoma
     Route: 042
  5. ZUBERITAMAB [Suspect]
     Active Substance: ZUBERITAMAB
     Dosage: SUBSEQUENT DOSE ON 10-OCT-2024
     Route: 042
     Dates: start: 20240808, end: 20240808
  6. DIETARY SUPPLEMENT [Suspect]
     Active Substance: DIETARY SUPPLEMENT
     Indication: Diffuse large B-cell lymphoma
     Dosage: SUBSEQUENT DOSE ON 13-SEP-2024 AND END DATE 23-SEP-2024
     Route: 065
  7. DIETARY SUPPLEMENT [Suspect]
     Active Substance: DIETARY SUPPLEMENT
     Route: 065
     Dates: start: 20240913, end: 20240923
  8. GENTAMICIN [Suspect]
     Active Substance: GENTAMICIN
     Indication: Diffuse large B-cell lymphoma
     Route: 065
  9. CASPOFUNGIN ACETATE [Suspect]
     Active Substance: CASPOFUNGIN ACETATE
     Indication: Diffuse large B-cell lymphoma
     Route: 042
  10. CASPOFUNGIN ACETATE [Suspect]
     Active Substance: CASPOFUNGIN ACETATE
     Dosage: SUBSEQUENT DOSE ON 07-NOV-2024
     Route: 042
     Dates: start: 20240919, end: 20240923
  11. MOXIFLOXACIN HYDROCHLORIDE [Suspect]
     Active Substance: MOXIFLOXACIN HYDROCHLORIDE
     Indication: Diffuse large B-cell lymphoma
     Route: 042
  12. MOXIFLOXACIN HYDROCHLORIDE [Suspect]
     Active Substance: MOXIFLOXACIN HYDROCHLORIDE
     Dosage: SUBSEQUENT DOSE ON 19-SEP-2024
     Route: 042
     Dates: start: 20240915, end: 20240923
  13. DOXORUBICIN HYDROCHLORIDE [Suspect]
     Active Substance: DOXORUBICIN HYDROCHLORIDE
     Indication: Diffuse large B-cell lymphoma
     Route: 042
  14. DOXORUBICIN HYDROCHLORIDE [Suspect]
     Active Substance: DOXORUBICIN HYDROCHLORIDE
     Dosage: SUBSEQUENT DOSE ON 11-OCT-2024
     Route: 042
     Dates: start: 20240809, end: 20240809
  15. CYCLOPHOSPHAMIDE [Suspect]
     Active Substance: CYCLOPHOSPHAMIDE
     Indication: Diffuse large B-cell lymphoma
     Route: 042
  16. CYCLOPHOSPHAMIDE [Suspect]
     Active Substance: CYCLOPHOSPHAMIDE
     Dosage: SUBSEQUENT DOSE ON 11-OCT-2024
     Route: 042
     Dates: start: 20240809, end: 20240809
  17. CEFOPERAZONE SODIUM\SULBACTAM SODIUM [Suspect]
     Active Substance: CEFOPERAZONE SODIUM\SULBACTAM SODIUM
     Indication: Diffuse large B-cell lymphoma
     Dosage: SUBSEQUENT DOSE ON 30-OCT-2024
     Route: 042
  18. CEFOPERAZONE SODIUM\SULBACTAM SODIUM [Suspect]
     Active Substance: CEFOPERAZONE SODIUM\SULBACTAM SODIUM
     Route: 042
     Dates: start: 20241030, end: 20241030
  19. CEFOPERAZONE SODIUM\SULBACTAM SODIUM [Suspect]
     Active Substance: CEFOPERAZONE SODIUM\SULBACTAM SODIUM
     Route: 042
     Dates: start: 20241107, end: 20241119
  20. PROBIOTICS NOS [Suspect]
     Active Substance: PROBIOTICS NOS
     Indication: Diffuse large B-cell lymphoma
     Route: 065
  21. HUMAN IMMUNOGLOBULIN G [Concomitant]
     Active Substance: HUMAN IMMUNOGLOBULIN G
     Route: 042
     Dates: start: 20241030, end: 20241103
  22. METHYLPREDNISOLONE [Concomitant]
     Active Substance: METHYLPREDNISOLONE
     Route: 042
     Dates: start: 20240919, end: 20240923
  23. METHYLPREDNISOLONE [Concomitant]
     Active Substance: METHYLPREDNISOLONE
     Route: 042
     Dates: start: 20241030, end: 20241108
  24. METHYLPREDNISOLONE [Concomitant]
     Active Substance: METHYLPREDNISOLONE
     Route: 042
     Dates: start: 20240919, end: 20240923
  25. METHYLPREDNISOLONE [Concomitant]
     Active Substance: METHYLPREDNISOLONE
     Route: 042
     Dates: start: 20241108, end: 20241119
  26. METHYLPREDNISOLONE [Concomitant]
     Active Substance: METHYLPREDNISOLONE
     Route: 042
     Dates: start: 20241119, end: 20241122
  27. METHYLPREDNISOLONE [Concomitant]
     Active Substance: METHYLPREDNISOLONE
     Route: 042
     Dates: start: 20241107, end: 20241107
  28. METHYLPREDNISOLONE [Concomitant]
     Active Substance: METHYLPREDNISOLONE
     Route: 042
     Dates: start: 20241030, end: 20241030
  29. Hydroprednisone inj [Concomitant]
     Route: 042
     Dates: start: 20240629, end: 20240704
  30. Hydroprednisone inj [Concomitant]
     Route: 042
     Dates: start: 20240624, end: 20240629
  31. Esomeprazole magnesium enteric capsule [Concomitant]
     Route: 048
     Dates: start: 20240809, end: 20240813
  32. Esomeprazole magnesium enteric capsule [Concomitant]
     Route: 048
     Dates: start: 20240830, end: 20240830
  33. Esomeprazole magnesium enteric capsule [Concomitant]
     Route: 048
     Dates: start: 20240624, end: 20240704
  34. Esomeprazole magnesium enteric capsule [Concomitant]
     Route: 048
     Dates: start: 20241012, end: 20241015
  35. Esomeprazole magnesium enteric capsule [Concomitant]
     Route: 048
     Dates: start: 20241119, end: 20241122
  36. CLOPIDOGREL BISULFATE [Concomitant]
     Active Substance: CLOPIDOGREL BISULFATE
     Route: 048
     Dates: start: 20240624, end: 20240704
  37. CLOPIDOGREL BISULFATE [Concomitant]
     Active Substance: CLOPIDOGREL BISULFATE
     Route: 048
     Dates: start: 20241107, end: 20241122
  38. Ondansetron hydrochloride inj [Concomitant]
     Route: 042
     Dates: start: 20240901, end: 20240902
  39. Ondansetron hydrochloride inj [Concomitant]
     Route: 042
     Dates: start: 20240902, end: 20240902
  40. Ondansetron hydrochloride inj [Concomitant]
     Route: 042
     Dates: start: 20240629, end: 20240701
  41. Ondansetron hydrochloride inj [Concomitant]
     Route: 042
     Dates: start: 20241011, end: 20241013
  42. Dolasetron mesylate inj [Concomitant]
     Route: 042
     Dates: start: 20240809, end: 20240811
  43. Dolasetron mesylate inj [Concomitant]
     Route: 042
     Dates: start: 20240701, end: 20240702
  44. DEXAMETHASONE SODIUM PHOSPHATE [Concomitant]
     Active Substance: DEXAMETHASONE SODIUM PHOSPHATE
     Route: 042
     Dates: start: 20240808, end: 20240808
  45. DEXAMETHASONE SODIUM PHOSPHATE [Concomitant]
     Active Substance: DEXAMETHASONE SODIUM PHOSPHATE
     Route: 042
     Dates: start: 20240901, end: 20240905
  46. DEXAMETHASONE SODIUM PHOSPHATE [Concomitant]
     Active Substance: DEXAMETHASONE SODIUM PHOSPHATE
     Dosage: ONLY ONCE
     Route: 030
     Dates: start: 20240830, end: 20240830
  47. DEXAMETHASONE SODIUM PHOSPHATE [Concomitant]
     Active Substance: DEXAMETHASONE SODIUM PHOSPHATE
     Route: 042
     Dates: start: 20240831, end: 20240831
  48. DEXAMETHASONE SODIUM PHOSPHATE [Concomitant]
     Active Substance: DEXAMETHASONE SODIUM PHOSPHATE
     Route: 042
     Dates: start: 20240809, end: 20240813
  49. DEXAMETHASONE SODIUM PHOSPHATE [Concomitant]
     Active Substance: DEXAMETHASONE SODIUM PHOSPHATE
     Route: 042
     Dates: start: 20241011, end: 20241015
  50. DEXAMETHASONE SODIUM PHOSPHATE [Concomitant]
     Active Substance: DEXAMETHASONE SODIUM PHOSPHATE
     Route: 042
     Dates: start: 20241010, end: 20241010
  51. DIPHENHYDRAMINE HYDROCHLORIDE [Concomitant]
     Active Substance: DIPHENHYDRAMINE HYDROCHLORIDE
     Dosage: ONLY ONCE
     Route: 030
     Dates: start: 20240831, end: 20240831
  52. DIPHENHYDRAMINE HYDROCHLORIDE [Concomitant]
     Active Substance: DIPHENHYDRAMINE HYDROCHLORIDE
     Route: 030
     Dates: start: 20240808, end: 20240808
  53. DIPHENHYDRAMINE HYDROCHLORIDE [Concomitant]
     Active Substance: DIPHENHYDRAMINE HYDROCHLORIDE
     Dosage: ONLY ONCE
     Route: 030
     Dates: start: 20240830, end: 20240830
  54. DIPHENHYDRAMINE HYDROCHLORIDE [Concomitant]
     Active Substance: DIPHENHYDRAMINE HYDROCHLORIDE
     Dosage: ONLY ONCE
     Route: 030
     Dates: start: 20241010, end: 20241010
  55. POTASSIUM CHLORIDE [Concomitant]
     Active Substance: POTASSIUM CHLORIDE
     Route: 042
     Dates: start: 20240831, end: 20240831
  56. POTASSIUM CHLORIDE [Concomitant]
     Active Substance: POTASSIUM CHLORIDE
     Route: 042
     Dates: start: 20240830, end: 20240830
  57. RIVAROXABAN [Concomitant]
     Active Substance: RIVAROXABAN
     Route: 048
     Dates: start: 20240922, end: 20240923
  58. RIVAROXABAN [Concomitant]
     Active Substance: RIVAROXABAN
     Route: 048
     Dates: start: 20241107, end: 20241122
  59. RIVAROXABAN [Concomitant]
     Active Substance: RIVAROXABAN
     Route: 048
     Dates: start: 20240624, end: 20240704
  60. VITAMINS [Concomitant]
     Active Substance: VITAMINS
     Route: 042
     Dates: start: 20241011, end: 20241015
  61. FUROSEMIDE [Concomitant]
     Active Substance: FUROSEMIDE
     Route: 042
     Dates: start: 20241031, end: 20241104
  62. OMEPRAZOLE SODIUM [Concomitant]
     Active Substance: OMEPRAZOLE SODIUM
     Route: 042
     Dates: start: 20241030, end: 20241106
  63. Esazolam [Concomitant]
     Dosage: EVERY NIGHT
     Route: 048
     Dates: start: 20241107, end: 20241121
  64. SULFAMETHOXAZOLE [Concomitant]
     Active Substance: SULFAMETHOXAZOLE
     Route: 048
     Dates: start: 20241111, end: 20241122

REACTIONS (3)
  - Pneumonia [Recovered/Resolved]
  - Pneumonia [Not Recovered/Not Resolved]
  - Gastroenteritis [Recovered/Resolved]

NARRATIVE: CASE EVENT DATE: 20240807
